FAERS Safety Report 6293508-8 (Version None)
Quarter: 2009Q3

REPORT INFORMATION
  Report Type: 
  Country: None (occurrence: None)
  Receive Date: 20090803
  Receipt Date: 20090130
  Transmission Date: 20100115
  Serious: Yes (Other)
  Sender: FDA-Public Use
  Company Number: US-ASTRAZENECA-2008UW13210

PATIENT
  Age: 63 Year
  Sex: Male

DRUGS (26)
  1. SEROQUEL [Suspect]
     Indication: DEPRESSION
     Route: 048
     Dates: start: 20031001, end: 20070101
  2. SEROQUEL [Suspect]
     Indication: ANXIETY
     Route: 048
     Dates: start: 20031001, end: 20070101
  3. XANAX [Suspect]
     Indication: DEPRESSION
     Dates: start: 20031001, end: 20070101
  4. XANAX [Suspect]
     Indication: ANXIETY
     Dates: start: 20031001, end: 20070101
  5. XANAX [Suspect]
     Indication: SLEEP DISORDER
     Dates: start: 20031001, end: 20070101
  6. WELLBUTRIN [Suspect]
     Indication: DEPRESSION
     Dates: start: 20031001, end: 20070101
  7. WELLBUTRIN [Suspect]
     Indication: ANXIETY
     Dates: start: 20031001, end: 20070101
  8. LEXAPRO [Suspect]
     Indication: DEPRESSION
     Dates: start: 20031001, end: 20060101
  9. LEXAPRO [Suspect]
     Indication: ANXIETY
     Dates: start: 20031001, end: 20060101
  10. RESTORIL [Suspect]
     Indication: DEPRESSION
     Dates: start: 20031001, end: 20070101
  11. RESTORIL [Suspect]
     Indication: ANXIETY
     Dates: start: 20031001, end: 20070101
  12. CYMBALTA [Suspect]
     Indication: DEPRESSION
     Dates: start: 20031001, end: 20070101
  13. CYMBALTA [Suspect]
     Indication: ANXIETY
     Dates: start: 20031001, end: 20070101
  14. ZOLOFT [Suspect]
     Dates: start: 20031001
  15. NEURONTIN [Suspect]
     Indication: AMNESIA
     Dates: start: 20031001
  16. NEURONTIN [Suspect]
     Indication: RESTLESS LEGS SYNDROME
     Dates: start: 20031001
  17. TRAZODONE HCL [Suspect]
     Dates: start: 20031001
  18. EFFEXOR [Suspect]
     Dates: start: 20031001
  19. LISINOPRIL [Concomitant]
     Indication: BLOOD PRESSURE
  20. FENOFIBRATE [Concomitant]
     Indication: BLOOD TRIGLYCERIDES
  21. FENOFIBRATE [Concomitant]
     Indication: BLOOD CHOLESTEROL
  22. LEVOTHYROXINE SODIUM [Concomitant]
     Indication: THYROID DISORDER
  23. AMBIEN [Concomitant]
     Indication: SLEEP DISORDER
  24. HYDROCHLOROTHIAZIDE [Concomitant]
     Indication: DEHYDRATION
  25. ACETAMINOPHEN AND HYDROCODONE BITARTRATE [Concomitant]
     Indication: BACK PAIN
  26. CARISOPRODOL [Concomitant]
     Indication: BACK PAIN

REACTIONS (56)
  - ACTIVITIES OF DAILY LIVING IMPAIRED [None]
  - AMNESIA [None]
  - ANGER [None]
  - ANXIETY [None]
  - APHASIA [None]
  - ASBESTOSIS [None]
  - ATTENTION DEFICIT/HYPERACTIVITY DISORDER [None]
  - BLOOD CHOLESTEROL ABNORMAL [None]
  - BLOOD CHOLESTEROL INCREASED [None]
  - BLOOD TRIGLYCERIDES ABNORMAL [None]
  - BRUXISM [None]
  - CONSTIPATION [None]
  - CONVULSION [None]
  - DECREASED APPETITE [None]
  - DEPRESSION [None]
  - DISORIENTATION [None]
  - DISSOCIATIVE DISORDER [None]
  - EMOTIONAL DISTRESS [None]
  - FEELING ABNORMAL [None]
  - GAIT DISTURBANCE [None]
  - HALLUCINATION [None]
  - HEADACHE [None]
  - HOSTILITY [None]
  - HYPERHIDROSIS [None]
  - HYPERTENSION [None]
  - HYPOTHYROIDISM [None]
  - INSOMNIA [None]
  - LETHARGY [None]
  - MENTAL DISORDER [None]
  - MUSCLE SPASMS [None]
  - MUSCLE TWITCHING [None]
  - NIGHTMARE [None]
  - OVERDOSE [None]
  - PAIN [None]
  - PALLOR [None]
  - PANCREATITIS [None]
  - PANIC DISORDER [None]
  - PARANOIA [None]
  - PYREXIA [None]
  - REGURGITATION [None]
  - RENAL FAILURE [None]
  - RESTLESS LEGS SYNDROME [None]
  - ROAD TRAFFIC ACCIDENT [None]
  - SCREAMING [None]
  - SLEEP APNOEA SYNDROME [None]
  - STRESS [None]
  - SUICIDAL IDEATION [None]
  - SUICIDE ATTEMPT [None]
  - TACHYCARDIA [None]
  - TARDIVE DYSKINESIA [None]
  - THYROID DISORDER [None]
  - TREATMENT NONCOMPLIANCE [None]
  - URINARY INCONTINENCE [None]
  - VOMITING [None]
  - WEIGHT DECREASED [None]
  - WITHDRAWAL SYNDROME [None]
